FAERS Safety Report 8405194-9 (Version None)
Quarter: 2012Q2

REPORT INFORMATION
  Report Type: 
  Country: None (occurrence: None)
  Receive Date: 20120603
  Receipt Date: 20120521
  Transmission Date: 20120825
  Serious: Yes (Hospitalization)
  Sender: FDA-Public Use
  Company Number: TW-BAYER-2012-049868

PATIENT
  Age: 73 Year
  Sex: Female

DRUGS (3)
  1. ASPIRIN [Suspect]
     Indication: HYPERTENSIVE HEART DISEASE
     Dosage: 100 MG, QD
  2. NSAID'S [Concomitant]
  3. ASPIRIN [Suspect]
     Indication: CEREBROVASCULAR ACCIDENT

REACTIONS (1)
  - GASTRIC ULCER HAEMORRHAGE [None]
